FAERS Safety Report 8603284-9 (Version None)
Quarter: 2012Q3

REPORT INFORMATION
  Report Type: 
  Country: None (occurrence: None)
  Receive Date: 20120817
  Receipt Date: 20120808
  Transmission Date: 20120928
  Serious: Yes (Other)
  Sender: FDA-Public Use
  Company Number: US-ASTRAZENECA-2006UW05644

PATIENT
  Age: 68 Year
  Sex: Male
  Weight: 68.9 kg

DRUGS (5)
  1. TETRACYCLINE [Concomitant]
  2. NEXIUM [Suspect]
     Indication: BARRETT'S OESOPHAGUS
     Route: 048
  3. ASPIRIN [Concomitant]
  4. PROSCAR [Concomitant]
  5. NEXIUM [Suspect]
     Route: 048

REACTIONS (5)
  - PRECANCEROUS CELLS PRESENT [None]
  - DRUG DOSE OMISSION [None]
  - GASTROOESOPHAGEAL REFLUX DISEASE [None]
  - CHOKING [None]
  - DYSPHONIA [None]
